FAERS Safety Report 7513066-7 (Version None)
Quarter: 2011Q2

REPORT INFORMATION
  Report Type: 
  Country: None (occurrence: None)
  Receive Date: 20110531
  Receipt Date: 20110525
  Transmission Date: 20111010
  Serious: Yes (Hospitalization)
  Sender: FDA-Public Use
  Company Number: GB-JNJFOC-20110304023

PATIENT
  Age: 49 Year
  Sex: Female

DRUGS (5)
  1. IBUPROFEN [Suspect]
     Indication: PRODUCT USED FOR UNKNOWN INDICATION
  2. DIAZEPAM [Suspect]
     Indication: PRODUCT USED FOR UNKNOWN INDICATION
  3. MEPERIDINE HYDROCHLORIDE [Suspect]
     Indication: PRODUCT USED FOR UNKNOWN INDICATION
  4. AMITRIPTYLINE HCL [Suspect]
     Indication: PRODUCT USED FOR UNKNOWN INDICATION
  5. NIZATIDINE [Suspect]
     Indication: PRODUCT USED FOR UNKNOWN INDICATION

REACTIONS (2)
  - MULTIPLE DRUG OVERDOSE INTENTIONAL [None]
  - LOSS OF CONSCIOUSNESS [None]
